FAERS Safety Report 7288484-5 (Version None)
Quarter: 2011Q1

REPORT INFORMATION
  Report Type: 
  Country: None (occurrence: None)
  Receive Date: 20110211
  Receipt Date: 20110202
  Transmission Date: 20110831
  Serious: Yes (Hospitalization)
  Sender: FDA-Public Use
  Company Number: B0698984A

PATIENT
  Age: 80 Year
  Sex: Female

DRUGS (15)
  1. BELOC ZOK [Concomitant]
  2. HYDROXYUREA [Concomitant]
  3. MARCOUMAR [Suspect]
     Indication: PROPHYLAXIS
     Route: 048
     Dates: start: 20101211, end: 20101214
  4. ZYLORIC [Concomitant]
  5. PANTOPRAZOLE [Concomitant]
  6. LEVEMIR [Concomitant]
  7. ESIDRIX [Concomitant]
  8. FLUOXETINE HCL [Concomitant]
  9. ASPIRIN [Suspect]
     Indication: PROPHYLAXIS
     Dosage: 100MG PER DAY
     Route: 048
     Dates: start: 20100101
  10. DAFALGAN [Concomitant]
     Dates: start: 20101209
  11. ARIXTRA [Suspect]
     Indication: PROPHYLAXIS
     Dosage: 5MG PER DAY
     Route: 058
     Dates: start: 20101209, end: 20101214
  12. PREDNISONE [Concomitant]
  13. TRIATEC [Concomitant]
  14. NOVALGIN [Concomitant]
     Dates: start: 20101209
  15. ACTOS [Concomitant]

REACTIONS (5)
  - HAEMORRHAGIC ANAEMIA [None]
  - MUSCLE HAEMORRHAGE [None]
  - CIRCUMSTANCE OR INFORMATION CAPABLE OF LEADING TO MEDICATION ERROR [None]
  - POSTOPERATIVE WOUND INFECTION [None]
  - INTERNATIONAL NORMALISED RATIO INCREASED [None]
